FAERS Safety Report 19244594 (Version 5)
Quarter: 2021Q3

REPORT INFORMATION
  Report Type: Report from Study
  Country: CA (occurrence: CA)
  Receive Date: 20210511
  Receipt Date: 20210923
  Transmission Date: 20211014
  Serious: Yes (Hospitalization, Other)
  Sender: FDA-Public Use
  Company Number: CA-TAKEDA-2021TUS029378

PATIENT
  Age: 60 Year
  Sex: Female

DRUGS (3)
  1. SALOFALK [Concomitant]
     Dosage: UNK UNK, BID
  2. VEDOLIZUMAB [Suspect]
     Active Substance: VEDOLIZUMAB
     Indication: CROHN^S DISEASE
     Dosage: 300 MILLIGRAM
     Route: 042
     Dates: start: 20210126
  3. VEDOLIZUMAB [Suspect]
     Active Substance: VEDOLIZUMAB
     Dosage: 300 MILLIGRAM
     Route: 042
     Dates: start: 20210126

REACTIONS (8)
  - Abdominal pain [Unknown]
  - Breath odour [Unknown]
  - Vomiting [Unknown]
  - Eczema [Unknown]
  - Drug level decreased [Unknown]
  - Crohn^s disease [Not Recovered/Not Resolved]
  - Ovarian cyst [Unknown]
  - Back pain [Unknown]

NARRATIVE: CASE EVENT DATE: 202104
